FAERS Safety Report 24425280 (Version 1)
Quarter: 2024Q4

REPORT INFORMATION
  Report Type: Spontaneous
  Country: US (occurrence: US)
  Receive Date: 20241011
  Receipt Date: 20241011
  Transmission Date: 20250115
  Serious: No
  Sender: SANDOZ
  Company Number: US-GLAXOSMITHKLINE-USCH2023057722

PATIENT
  Age: 35 Year

DRUGS (1)
  1. VOLTAREN [Suspect]
     Active Substance: DICLOFENAC SODIUM
     Indication: Product used for unknown indication
     Dosage: UNK (USED AROUND 10 TIMES PER DAY)
     Route: 065

REACTIONS (3)
  - Euphoric mood [Unknown]
  - Dizziness [Unknown]
  - Product use issue [Unknown]
